FAERS Safety Report 7815746-2 (Version None)
Quarter: 2011Q4

REPORT INFORMATION
  Report Type: 
  Country: None (occurrence: None)
  Receive Date: 20111014
  Receipt Date: 20111004
  Transmission Date: 20120403
  Serious: Yes (Hospitalization, Other)
  Sender: FDA-Public Use
  Company Number: US-ABBOTT-11P-163-0853245-00

PATIENT
  Sex: Male
  Weight: 95.34 kg

DRUGS (43)
  1. CARVEDILOL [Concomitant]
     Indication: HYPERTENSION
     Route: 048
  2. CALCIUM +VIT D [Concomitant]
     Indication: PRODUCT USED FOR UNKNOWN INDICATION
  3. OXYCODONE HCL [Concomitant]
     Indication: ABDOMINAL PAIN
  4. HUMIRA [Suspect]
     Route: 058
  5. MAXZIDE [Concomitant]
     Indication: HYPERTENSION
     Route: 048
  6. NITROGLYCERIN [Concomitant]
     Indication: CHEST PAIN
     Dosage: UNDER TONGUE Q5 MIN AS NEEDED FOR CHEST PAIN
     Route: 060
  7. BENICAR [Concomitant]
     Indication: HYPERTENSION
  8. FUROSEMIDE [Concomitant]
     Indication: SWELLING
     Route: 048
  9. FOLIC ACID [Concomitant]
     Indication: PRODUCT USED FOR UNKNOWN INDICATION
  10. COREG [Concomitant]
     Indication: PRODUCT USED FOR UNKNOWN INDICATION
     Route: 048
  11. HUMIRA [Suspect]
     Route: 058
     Dates: start: 20110616, end: 20110815
  12. HYTRIN [Concomitant]
     Indication: HYPERTENSION
     Dosage: AT BEDTIME
     Route: 048
  13. ATARAX [Concomitant]
     Indication: PRURITUS
  14. IRON [Concomitant]
     Indication: PRODUCT USED FOR UNKNOWN INDICATION
  15. AUGMENTIN '125' [Concomitant]
     Indication: PRODUCT USED FOR UNKNOWN INDICATION
     Dates: start: 20110819, end: 20110826
  16. HUMIRA [Suspect]
     Dates: start: 20110914
  17. VANCOMYCIN HCL [Suspect]
     Dates: end: 20110826
  18. DILTIAZEM CD [Concomitant]
     Indication: HYPERTENSION
     Route: 048
  19. DEXILANT [Concomitant]
     Indication: GASTROOESOPHAGEAL REFLUX DISEASE
     Route: 048
  20. LANTUS [Concomitant]
     Indication: DIABETES MELLITUS
     Dosage: AT BEDTIME
  21. VANCOMYCIN HCL [Suspect]
     Indication: CLOSTRIDIAL INFECTION
     Dates: start: 20110819
  22. ELAVIL [Concomitant]
     Indication: INSOMNIA
     Dosage: AT BEDTIME
  23. HTZ [Concomitant]
     Indication: HYPERTENSION
  24. HUMALOG [Concomitant]
     Indication: DIABETES MELLITUS
     Dosage: SLIDING SCALE AS NEEDED
  25. FENOFIBRATE [Concomitant]
     Indication: BLOOD TRIGLYCERIDES INCREASED
     Dates: start: 20110820
  26. TEKTURNA [Concomitant]
     Indication: HYPERTENSION
     Route: 048
  27. CO Q-10 [Concomitant]
     Indication: PRODUCT USED FOR UNKNOWN INDICATION
  28. ASPIRIN [Concomitant]
     Indication: PRODUCT USED FOR UNKNOWN INDICATION
     Dosage: FULL DOSE
  29. LIPITOR [Concomitant]
     Indication: PRODUCT USED FOR UNKNOWN INDICATION
     Dosage: EVERY EVENING AT BEDTIME
     Route: 048
  30. VITAMIN B6 [Concomitant]
     Indication: PRODUCT USED FOR UNKNOWN INDICATION
     Route: 048
  31. HYDROMORPHONE HCL [Concomitant]
     Indication: PRODUCT USED FOR UNKNOWN INDICATION
  32. MULTI-VITAMINS [Concomitant]
     Indication: PRODUCT USED FOR UNKNOWN INDICATION
     Dosage: DAILY
  33. FISH OIL [Concomitant]
     Indication: PRODUCT USED FOR UNKNOWN INDICATION
  34. BENICAR [Concomitant]
     Indication: PRODUCT USED FOR UNKNOWN INDICATION
     Route: 048
  35. HUMIRA [Suspect]
     Indication: CROHN'S DISEASE
     Route: 058
     Dates: start: 20110606, end: 20110606
  36. PREDNISONE [Concomitant]
     Indication: CROHN'S DISEASE
  37. LIPITOR [Concomitant]
     Indication: BLOOD TRIGLYCERIDES INCREASED
  38. LEXAPRO [Concomitant]
     Indication: DEPRESSION
     Route: 048
  39. CLOTRIMAZOLE HCTZ [Concomitant]
     Indication: HYPERTENSION
     Dosage: 75/50
  40. VIT C [Concomitant]
     Indication: PRODUCT USED FOR UNKNOWN INDICATION
     Route: 048
  41. OXYCODONE HCL [Concomitant]
     Indication: BACK PAIN
     Dosage: 325/5 MG
  42. XANAX [Concomitant]
     Indication: ANXIETY
     Dosage: TWICE A DAY AS NEEDED
     Route: 048
  43. HYDRALAZINE HCL [Concomitant]
     Indication: PRODUCT USED FOR UNKNOWN INDICATION
     Route: 048

REACTIONS (11)
  - CROHN'S DISEASE [None]
  - DRUG INEFFECTIVE [None]
  - CELLULITIS [None]
  - PRURITUS GENERALISED [None]
  - DIARRHOEA [None]
  - CLOSTRIDIUM DIFFICILE COLITIS [None]
  - BACK PAIN [None]
  - ERYTHEMA [None]
  - PAIN IN EXTREMITY [None]
  - RENAL FAILURE [None]
  - MELAENA [None]
